APPROVED DRUG PRODUCT: MEXILETINE HYDROCHLORIDE
Active Ingredient: MEXILETINE HYDROCHLORIDE
Strength: 250MG
Dosage Form/Route: CAPSULE;ORAL
Application: A074377 | Product #003 | TE Code: AB
Applicant: TEVA PHARMACEUTICALS USA INC
Approved: May 16, 1995 | RLD: No | RS: Yes | Type: RX